FAERS Safety Report 5945857-8 (Version None)
Quarter: 2008Q4

REPORT INFORMATION
  Report Type: 
  Country: None (occurrence: None)
  Receive Date: 20081110
  Receipt Date: 20081103
  Transmission Date: 20090506
  Serious: Yes (Hospitalization)
  Sender: FDA-Public Use
  Company Number: US-ELI_LILLY_AND_COMPANY-US200810005814

PATIENT
  Sex: Female
  Weight: 86.621 kg

DRUGS (5)
  1. SOMATROPIN [Suspect]
     Indication: GROWTH HORMONE DEFICIENCY
  2. HYDROCORTISONE [Concomitant]
     Indication: ADRENAL INSUFFICIENCY
     Dates: start: 20051227
  3. SYNTHROID [Concomitant]
     Indication: HYPOTHYROIDISM
     Dates: start: 20051227
  4. CALCIUM [Concomitant]
     Indication: SUPPLEMENTATION THERAPY
     Dates: start: 19980101
  5. MULTIVITAMINS, COMBINATIONS [Concomitant]
     Indication: SUPPLEMENTATION THERAPY
     Dates: start: 19980101

REACTIONS (2)
  - DEHYDRATION [None]
  - HYPONATRAEMIA [None]
